FAERS Safety Report 10971088 (Version 1)
Quarter: 2015Q1

REPORT INFORMATION
  Report Type: Spontaneous
  Country: GB (occurrence: GB)
  Receive Date: 20150331
  Receipt Date: 20150331
  Transmission Date: 20150721
  Serious: Yes (Hospitalization)
  Sender: FDA-Public Use
  Company Number: PHFR2015GB002734

PATIENT
  Age: 51 Year
  Sex: Female

DRUGS (1)
  1. CLOZARIL [Suspect]
     Active Substance: CLOZAPINE
     Indication: SCHIZOPHRENIA
     Dosage: 350 OT, QD
     Route: 048
     Dates: start: 20120922

REACTIONS (1)
  - Schizophrenia [Recovering/Resolving]

NARRATIVE: CASE EVENT DATE: 20150128
